FAERS Safety Report 20556153 (Version 1)
Quarter: 2022Q1

REPORT INFORMATION
  Report Type: Spontaneous
  Country: DE (occurrence: None)
  Receive Date: 20220304
  Receipt Date: 20220304
  Transmission Date: 20220424
  Serious: Yes (Hospitalization)
  Sender: FDA-Public Use
  Company Number: DE-ROCHE-3036175

PATIENT
  Sex: Female

DRUGS (1)
  1. TECENTRIQ [Suspect]
     Active Substance: ATEZOLIZUMAB
     Indication: Triple negative breast cancer
     Route: 065

REACTIONS (6)
  - Fatigue [Unknown]
  - Skin toxicity [Unknown]
  - Diarrhoea [Unknown]
  - Insomnia [Unknown]
  - Hot flush [Unknown]
  - Hepatotoxicity [Unknown]
